FAERS Safety Report 6377639-X (Version None)
Quarter: 2009Q3

REPORT INFORMATION
  Report Type: 
  Country: None (occurrence: None)
  Receive Date: 20090925
  Receipt Date: 20090910
  Transmission Date: 20100115
  Serious: Yes (Other)
  Sender: FDA-Public Use
  Company Number: CHPA2009US16642

PATIENT
  Sex: Male
  Weight: 90.249 kg

DRUGS (4)
  1. BENEFIBER W/ WHEAT DEXTRIN (NCH) [Suspect]
     Indication: CONSTIPATION
     Dosage: 4 TSP, BID
     Route: 048
     Dates: start: 20090301
  2. HYDROCODONE [Concomitant]
     Indication: BACK PAIN
     Dosage: 15 MG 4-6 X DAILY EACH DAY
     Route: 048
     Dates: start: 20030101
  3. FLEXERIL [Concomitant]
     Indication: BACK PAIN
     Dosage: 10 MG, TID
     Route: 048
     Dates: start: 20090301, end: 20090803
  4. DRUG THERAPY NOS [Concomitant]
     Dosage: UNK

REACTIONS (2)
  - BLOOD URINE PRESENT [None]
  - OVERDOSE [None]
